FAERS Safety Report 16165177 (Version 1)
Quarter: 2019Q2

REPORT INFORMATION
  Report Type: Spontaneous
  Country: UY (occurrence: UY)
  Receive Date: 20190405
  Receipt Date: 20190405
  Transmission Date: 20190711
  Serious: Yes (Death)
  Sender: FDA-Public Use
  Company Number: UY-CELGENEUS-URY-20190401739

PATIENT
  Age: 44 Year
  Sex: Female

DRUGS (1)
  1. POMALYST [Suspect]
     Active Substance: POMALIDOMIDE
     Indication: PLASMA CELL MYELOMA
     Dosage: 4 MILLIGRAM
     Route: 048
     Dates: start: 20190401

REACTIONS (1)
  - Death [Fatal]

NARRATIVE: CASE EVENT DATE: 20190402
